FAERS Safety Report 5286556-8 (Version None)
Quarter: 2007Q2

REPORT INFORMATION
  Report Type: 
  Country: None (occurrence: None)
  Receive Date: 20070404
  Receipt Date: 20070329
  Transmission Date: 20071010
  Serious: Yes (Death, Life-Threatening, Hospitalization, Disabling)
  Sender: FDA-Public Use
  Company Number: BE-ELI_LILLY_AND_COMPANY-BE200703006488

PATIENT
  Age: 69 Year
  Sex: Female

DRUGS (1)
  1. GEMZAR [Suspect]
     Indication: SQUAMOUS CELL CARCINOMA
     Dosage: UNK, UNK
     Dates: start: 20050426, end: 20050705

REACTIONS (1)
  - RADIATION PNEUMONITIS [None]
